FAERS Safety Report 13892891 (Version 1)
Quarter: 2017Q3

REPORT INFORMATION
  Report Type: Spontaneous
  Country: US (occurrence: US)
  Receive Date: 20170822
  Receipt Date: 20170822
  Transmission Date: 20171127
  Serious: No
  Sender: FDA-Public Use
  Company Number: US-ROCHE-1463830

PATIENT
  Age: 55 Year
  Sex: Female
  Weight: 67.19 kg

DRUGS (1)
  1. HERCEPTIN [Suspect]
     Active Substance: TRASTUZUMAB
     Indication: HER-2 POSITIVE BREAST CANCER
     Dosage: 402/408?
     Route: 042
     Dates: start: 19980818

REACTIONS (4)
  - Headache [Unknown]
  - Weight increased [Unknown]
  - Chills [Unknown]
  - Bone pain [Unknown]

NARRATIVE: CASE EVENT DATE: 20140916
